FAERS Safety Report 12332549 (Version 2)
Quarter: 2016Q2

REPORT INFORMATION
  Report Type: Spontaneous
  Country: AU (occurrence: AU)
  Receive Date: 20160504
  Receipt Date: 20160606
  Transmission Date: 20160815
  Serious: Yes (Hospitalization, Other)
  Sender: FDA-Public Use
  Company Number: AU-SA-2016SA084001

PATIENT
  Age: 63 Year
  Sex: Male

DRUGS (8)
  1. LEMTRADA [Suspect]
     Active Substance: ALEMTUZUMAB
     Indication: RELAPSING-REMITTING MULTIPLE SCLEROSIS
     Route: 042
     Dates: start: 20150902, end: 20150904
  2. BACLOFEN. [Concomitant]
     Active Substance: BACLOFEN
     Dosage: 2 TABLET EACH NIGHT AND ONE OR TABLET AS REQUIRED UP TO MAXIMUM OF 6 PER DAY
  3. MAGNESIUM AMINO ACID CHELATE [Concomitant]
     Dosage: ONE OR TWO CAPSULES EACH NIGHT
  4. CEFTRIAXONE. [Concomitant]
     Active Substance: CEFTRIAXONE
  5. AMOXICILLIN. [Concomitant]
     Active Substance: AMOXICILLIN
  6. METHYLPREDNISOLONE. [Concomitant]
     Active Substance: METHYLPREDNISOLONE
  7. LEMTRADA [Suspect]
     Active Substance: ALEMTUZUMAB
     Indication: RELAPSING-REMITTING MULTIPLE SCLEROSIS
     Route: 042
     Dates: start: 20140917, end: 20140921
  8. GABAPENTIN. [Concomitant]
     Active Substance: GABAPENTIN
     Dosage: EACH NIGHT

REACTIONS (3)
  - Listeriosis [Recovered/Resolved]
  - Pyrexia [Recovered/Resolved]
  - Malaise [Recovered/Resolved]

NARRATIVE: CASE EVENT DATE: 20160425
